FAERS Safety Report 9298049 (Version 1)
Quarter: 2012Q4

REPORT INFORMATION
  Report Type: Spontaneous
  Country: GB (occurrence: None)
  Receive Date: 20120918
  Receipt Date: 20120918
  Transmission Date: 20130627
  Serious: Yes (Life-Threatening)
  Sender: FDA-Public Use
  Company Number: GBR-CLT-2009005

PATIENT
  Age: 8 Day
  Sex: Female
  Weight: 1.9 kg

DRUGS (5)
  1. CARBAGLU [Suspect]
     Indication: HYPERAMMONEMIA
     Route: 048
     Dates: start: 20080129, end: 20080129
  2. CARBAGLU [Suspect]
     Indication: HYPERAMMONEMIA
     Route: 048
     Dates: start: 20080130, end: 20080131
  3. CARBAGLU [Suspect]
     Indication: HYPERAMMONEMIA
     Route: 048
     Dates: start: 20080201, end: 20080201
  4. BENZYLPENICILLIN [Concomitant]
  5. GENTAMICIN [Concomitant]

REACTIONS (5)
  - Hypotension [None]
  - Cardiac arrest [None]
  - Lactic acidosis [None]
  - Coagulopathy [None]
  - Thrombocytopenia [None]
